FAERS Safety Report 4681027-1 (Version None)
Quarter: 2005Q2

REPORT INFORMATION
  Report Type: 
  Country: None (occurrence: None)
  Receive Date: 20050601
  Receipt Date: 20050519
  Transmission Date: 20051028
  Serious: Yes (Other)
  Sender: FDA-Public Use
  Company Number: 2005077260

PATIENT
  Age: 59 Year
  Sex: Male
  Weight: 129.2752 kg

DRUGS (1)
  1. CELEBREX [Suspect]
     Indication: ARTHRALGIA
     Dosage: 200 MG (200 MG, 1 IN 1 D), ORAL
     Route: 048

REACTIONS (3)
  - ABASIA [None]
  - ARTHRALGIA [None]
  - NO THERAPEUTIC RESPONSE [None]
